FAERS Safety Report 6991282-0 (Version None)
Quarter: 2010Q3

REPORT INFORMATION
  Report Type: 
  Country: None (occurrence: None)
  Receive Date: 20100916
  Receipt Date: 20080925
  Transmission Date: 20110219
  Serious: No
  Sender: FDA-Public Use
  Company Number: US-WYE-H06145408

PATIENT
  Age: 68 Year
  Sex: Female
  Weight: 72.64 kg

DRUGS (6)
  1. PREMARIN [Suspect]
     Indication: HORMONE REPLACEMENT THERAPY
     Route: 048
     Dates: start: 19860101
  2. PREVACID [Concomitant]
     Indication: GASTROOESOPHAGEAL REFLUX DISEASE
  3. PULMICORT [Concomitant]
     Indication: ASTHMA
  4. NASONEX [Concomitant]
     Indication: HYPERSENSITIVITY
  5. DIOVAN [Suspect]
     Indication: HYPERTENSION
  6. VERAPAMIL [Suspect]
     Indication: HYPERTENSION

REACTIONS (3)
  - DRUG INEFFECTIVE [None]
  - HOT FLUSH [None]
  - HYPERHIDROSIS [None]
